FAERS Safety Report 8832568 (Version 1)
Quarter: 2012Q4

REPORT INFORMATION
  Report Type: 
  Country: US (occurrence: US)
  Receive Date: 20121010
  Receipt Date: 20121010
  Transmission Date: 20130627
  Serious: Yes (Hospitalization)
  Sender: FDA-Public Use
  Company Number: US-BAYER-2012-104134

PATIENT
  Age: 25 Year
  Sex: Female

DRUGS (12)
  1. YAZ [Suspect]
  2. BEYAZ [Suspect]
  3. LORATADINE [Concomitant]
     Dosage: 10 mg, 1 tablet everyday PRN
     Route: 048
     Dates: start: 20120428
  4. ASCORBIC ACID [Concomitant]
     Dosage: 500 mg, 1 TABLET
     Route: 048
     Dates: start: 20120521
  5. BIOTIN [Concomitant]
     Dosage: UNK
     Route: 048
     Dates: start: 20120521
  6. COLECALCIFEROL [Concomitant]
     Dosage: 1000 u, QD
     Route: 048
     Dates: start: 20120521
  7. LINUM USITATISSIMUM SEED [Concomitant]
     Dosage: 1 capsule everyday
     Route: 048
     Dates: start: 20120521
  8. MELATONIN [Concomitant]
     Dosage: 3 mg, 3 tablet by mouth at bedtime as needed
     Route: 048
     Dates: start: 20120521
  9. PSYLLIUM [Concomitant]
     Dosage: 1 packet by mouth everyday as needed
     Route: 048
     Dates: start: 20120521
  10. BACTRIM [Concomitant]
     Dosage: 1 tablet 2 times daily
     Route: 048
     Dates: start: 20120525, end: 20120527
  11. CYANOCOBALAMIN [Concomitant]
  12. NORCO [Concomitant]

REACTIONS (1)
  - Subclavian vein thrombosis [Recovering/Resolving]
